FAERS Safety Report 6700665-5 (Version None)
Quarter: 2010Q2

REPORT INFORMATION
  Report Type: 
  Country: None (occurrence: None)
  Receive Date: 20100428
  Receipt Date: 20100418
  Transmission Date: 20101027
  Serious: Yes (Hospitalization)
  Sender: FDA-Public Use
  Company Number: PHHY2010PL25115

PATIENT
  Sex: Female
  Weight: 57 kg

DRUGS (3)
  1. CERTICAN [Suspect]
     Indication: PROPHYLAXIS AGAINST TRANSPLANT REJECTION
     Dosage: 0.75-0-1.5 MG/DAY
     Route: 048
     Dates: start: 20090929, end: 20100410
  2. PROGRAF [Concomitant]
     Indication: IMMUNOSUPPRESSION
     Dosage: 2 X 8 MG
     Dates: start: 20090728
  3. VALCYTE [Concomitant]
     Indication: CYTOMEGALOVIRUS INFECTION
     Dosage: 2 X 150 MG
     Dates: start: 20090929

REACTIONS (1)
  - LEUKOPENIA [None]
